FAERS Safety Report 8798559 (Version 1)
Quarter: 2012Q4

REPORT INFORMATION
  Report Type: 
  Country: US (occurrence: US)
  Receive Date: 20120920
  Receipt Date: 20120920
  Transmission Date: 20130627
  Serious: No
  Sender: FDA-Public Use
  Company Number: US-009507513-2011SP051450

PATIENT
  Sex: Female

DRUGS (1)
  1. DIPROLENE [Suspect]

REACTIONS (2)
  - Skin burning sensation [Unknown]
  - Middle insomnia [Unknown]
